FAERS Safety Report 7980300-9 (Version None)
Quarter: 2011Q4

REPORT INFORMATION
  Report Type: 
  Country: None (occurrence: None)
  Receive Date: 20111214
  Receipt Date: 20111205
  Transmission Date: 20120403
  Serious: Yes (Other)
  Sender: FDA-Public Use
  Company Number: FR-ASTRAZENECA-2011SE48818

PATIENT
  Age: 26 Year
  Sex: Female
  Weight: 75 kg

DRUGS (10)
  1. ESOMEPRAZOLE MAGNESIUM [Suspect]
     Route: 048
  2. LEVOFLOXACIN [Concomitant]
  3. VANCOMYCIN [Concomitant]
  4. VORICONAZOLE [Interacting]
     Route: 042
  5. VORICONAZOLE [Interacting]
     Route: 042
  6. METHADONE HCL [Interacting]
     Route: 048
  7. VORICONAZOLE [Interacting]
     Indication: ASPERGILLOSIS
     Dosage: ON DAY 1
     Route: 042
     Dates: start: 20090421
  8. AMIKACIN [Concomitant]
  9. IMIPENEM [Concomitant]
  10. METHADONE HCL [Interacting]
     Route: 048

REACTIONS (2)
  - DRUG INTERACTION [None]
  - EXTRASYSTOLES [None]
